FAERS Safety Report 15074585 (Version 2)
Quarter: 2019Q2

REPORT INFORMATION
  Report Type: Spontaneous
  Country: US (occurrence: US)
  Receive Date: 20180627
  Receipt Date: 20190626
  Transmission Date: 20190711
  Serious: No
  Sender: FDA-Public Use
  Company Number: US-SAOL THERAPEUTICS-2018SAO00747

PATIENT
  Age: 47 Year
  Sex: Female
  Weight: 56.69 kg

DRUGS (12)
  1. BACLOFEN. [Suspect]
     Active Substance: BACLOFEN
     Dosage: 63.32 ?G, \DAY
     Route: 037
     Dates: start: 20180629
  2. CYMBALTA [Concomitant]
     Active Substance: DULOXETINE HYDROCHLORIDE
  3. OCREVUS [Concomitant]
     Active Substance: OCRELIZUMAB
  4. BACLOFEN. [Suspect]
     Active Substance: BACLOFEN
     Dosage: 85 ?G, \DAY
     Route: 037
     Dates: start: 20180514, end: 20180523
  5. PROVIGIL [Concomitant]
     Active Substance: MODAFINIL
  6. MILK OF MAGNESIA [Concomitant]
     Active Substance: MAGNESIUM HYDROXIDE
  7. BACLOFEN. [Suspect]
     Active Substance: BACLOFEN
     Dosage: 69.33 ?G, \DAY
     Route: 037
     Dates: start: 20180523, end: 20180629
  8. DULCOLAX NOS [Concomitant]
     Active Substance: BISACODYL OR DOCUSATE SODIUM
  9. IBUPROFEN. [Concomitant]
     Active Substance: IBUPROFEN
  10. COLACE [Concomitant]
     Active Substance: DOCUSATE SODIUM
  11. BACLOFEN. [Suspect]
     Active Substance: BACLOFEN
     Indication: MUSCLE SPASTICITY
     Dosage: 100 ?G, \DAY
     Route: 037
     Dates: start: 20180302, end: 20180514
  12. DOXEPIN [Concomitant]
     Active Substance: DOXEPIN

REACTIONS (2)
  - Mobility decreased [Unknown]
  - Asthenia [Unknown]

NARRATIVE: CASE EVENT DATE: 201805
